FAERS Safety Report 4405229-4 (Version None)
Quarter: 2004Q3

REPORT INFORMATION
  Report Type: 
  Country: None (occurrence: None)
  Receive Date: 20040722
  Receipt Date: 20040722
  Transmission Date: 20050211
  Serious: Yes (Other)
  Sender: FDA-Public Use
  Company Number: None

PATIENT
  Sex: Male
  Weight: 74.8435 kg

DRUGS (2)
  1. PAROXETINE HCL [Suspect]
     Indication: ANXIETY
     Dosage: 10 MG BID ORAL
     Route: 048
     Dates: start: 20040512, end: 20040721
  2. PAROXETINE HCL [Suspect]
     Indication: OBSESSIVE-COMPULSIVE DISORDER
     Dosage: 10 MG BID ORAL
     Route: 048
     Dates: start: 20040512, end: 20040721

REACTIONS (2)
  - DRUG WITHDRAWAL SYNDROME [None]
  - PHARMACEUTICAL PRODUCT COMPLAINT [None]
